FAERS Safety Report 10164146 (Version 2)
Quarter: 2014Q2

REPORT INFORMATION
  Report Type: Spontaneous
  Country: US (occurrence: US)
  Receive Date: 20140510
  Receipt Date: 20140510
  Transmission Date: 20141212
  Serious: No
  Sender: FDA-Public Use
  Company Number: US-BRISTOL-MYERS SQUIBB COMPANY-19989664

PATIENT
  Age: 61 Year
  Sex: Male
  Weight: 88.89 kg

DRUGS (4)
  1. BYDUREON [Suspect]
     Indication: TYPE 2 DIABETES MELLITUS
     Dosage: INJ
     Dates: start: 201309, end: 20140109
  2. METFORMIN HCL [Suspect]
  3. GLYBURIDE [Suspect]
     Dosage: 1DF:2.5
  4. CRESTOR [Concomitant]

REACTIONS (2)
  - Product quality issue [Unknown]
  - Blood glucose increased [Unknown]
